FAERS Safety Report 6804634-6 (Version None)
Quarter: 2010Q2

REPORT INFORMATION
  Report Type: 
  Country: None (occurrence: None)
  Receive Date: 20100628
  Receipt Date: 20070411
  Transmission Date: 20101027
  Serious: No
  Sender: FDA-Public Use
  Company Number: US-PFIZER INC-2007029519

PATIENT
  Sex: Female

DRUGS (2)
  1. XALATAN [Suspect]
     Dates: end: 20070410
  2. SITAGLIPTIN [Interacting]
     Dates: start: 20070321, end: 20070410

REACTIONS (2)
  - ADVERSE DRUG REACTION [None]
  - DRUG INTERACTION [None]
